FAERS Safety Report 5042642-9 (Version None)
Quarter: 2006Q3

REPORT INFORMATION
  Report Type: 
  Country: None (occurrence: None)
  Receive Date: 20060705
  Receipt Date: 20051115
  Transmission Date: 20061208
  Serious: Yes (Death, Hospitalization)
  Sender: FDA-Public Use
  Company Number: JP-SANOFI-SYNTHELABO-A01200508036

PATIENT
  Sex: Male

DRUGS (9)
  1. DECADRON [Concomitant]
     Route: 048
     Dates: start: 20050422, end: 20051102
  2. DEPAS [Concomitant]
     Route: 048
     Dates: start: 20050422, end: 20051102
  3. NAUZELIN [Concomitant]
     Route: 048
     Dates: start: 20050422, end: 20051102
  4. MUCOSOLVAN [Concomitant]
     Route: 048
     Dates: start: 20050422, end: 20051102
  5. URSO [Concomitant]
     Route: 048
     Dates: start: 20050422, end: 20051102
  6. CLARITHROMYCIN [Concomitant]
     Route: 048
     Dates: start: 20050422, end: 20051102
  7. GEMCITABINE [Suspect]
     Route: 041
     Dates: start: 20051102, end: 20051102
  8. GASTER D [Concomitant]
     Dosage: ORAL
     Route: 048
     Dates: start: 20050422, end: 20051102
  9. OXALIPLATIN [Suspect]
     Indication: GASTRIC CANCER
     Route: 041
     Dates: start: 20051102, end: 20051102

REACTIONS (7)
  - CARDIO-RESPIRATORY ARREST [None]
  - DISSEMINATED INTRAVASCULAR COAGULATION [None]
  - INTERSTITIAL LUNG DISEASE [None]
  - LYMPHANGIOSIS CARCINOMATOSA [None]
  - MALIGNANT PLEURAL EFFUSION [None]
  - PULMONARY OEDEMA [None]
  - RESPIRATORY FAILURE [None]
